FAERS Safety Report 6597186-X (Version None)
Quarter: 2010Q1

REPORT INFORMATION
  Report Type: 
  Country: None (occurrence: None)
  Receive Date: 20100223
  Receipt Date: 20100215
  Transmission Date: 20100710
  Serious: Yes (Death)
  Sender: FDA-Public Use
  Company Number: FR-PFIZER INC-2010019392

PATIENT
  Age: 59 Year
  Sex: Female

DRUGS (9)
  1. TAHOR [Suspect]
     Dosage: 20 MG, 1X/DAY
     Route: 048
     Dates: end: 20100118
  2. HYDROXYZINE HCL [Suspect]
     Dosage: 25 MG, 1X/DAY
     Route: 048
     Dates: start: 20100111, end: 20100115
  3. VINORELBINE [Suspect]
     Dosage: 1 DF, MONTHLY
     Route: 042
     Dates: start: 20091124, end: 20091124
  4. VINORELBINE [Suspect]
     Dosage: 1 DF, MONTHLY
     Route: 042
     Dates: start: 20091221, end: 20091221
  5. TOPALGIC [Suspect]
     Dosage: 50 MG, 2X/DAY
     Route: 048
     Dates: start: 20100111, end: 20100116
  6. LEVOTHYROX [Suspect]
     Dosage: 25 UG, 1X/DAY
     Route: 048
     Dates: end: 20100118
  7. CORDARONE [Suspect]
     Dosage: 1 DF, 1X/DAY
     Route: 048
     Dates: end: 20100118
  8. FLECAINIDE ACETATE [Suspect]
     Dosage: 200 MG, 1X/DAY
     Route: 048
     Dates: end: 20100118
  9. LASILIX [Suspect]
     Dosage: 40 MG, 1X/DAY
     Route: 048
     Dates: end: 20100118

REACTIONS (6)
  - FAECAL VOMITING [None]
  - INTESTINAL OBSTRUCTION [None]
  - MALIGNANT NEOPLASM PROGRESSION [None]
  - METASTASES TO LIVER [None]
  - OVARIAN CANCER [None]
  - RESPIRATORY DISTRESS [None]
